FAERS Safety Report 12324961 (Version 1)
Quarter: 2016Q2

REPORT INFORMATION
  Report Type: Spontaneous
  Country: US (occurrence: US)
  Receive Date: 20160502
  Receipt Date: 20160502
  Transmission Date: 20160815
  Serious: No
  Sender: FDA-Public Use
  Company Number: US-BIOGEN-2016BI00219750

PATIENT

DRUGS (2)
  1. TECFIDERA [Suspect]
     Active Substance: DIMETHYL FUMARATE
     Indication: MULTIPLE SCLEROSIS
     Route: 065
  2. LYRICA [Concomitant]
     Active Substance: PREGABALIN
     Indication: PARAESTHESIA
     Route: 065

REACTIONS (2)
  - Hypoaesthesia [Unknown]
  - Paraesthesia [Unknown]
